FAERS Safety Report 6238980-4 (Version None)
Quarter: 2009Q2

REPORT INFORMATION
  Report Type: 
  Country: None (occurrence: None)
  Receive Date: 20090622
  Receipt Date: 20090616
  Transmission Date: 20091009
  Serious: Yes (Other)
  Sender: FDA-Public Use
  Company Number: A0791782A

PATIENT
  Age: 75 Year
  Sex: Female

DRUGS (3)
  1. ADVAIR HFA [Suspect]
     Indication: ASTHMA
     Dosage: 1PUFF PER DAY
     Route: 055
     Dates: start: 20090401, end: 20090601
  2. KLONOPIN [Concomitant]
  3. ALBUTEROL [Concomitant]

REACTIONS (2)
  - CATARACT [None]
  - VISION BLURRED [None]
